FAERS Safety Report 19173459 (Version 1)
Quarter: 2021Q2

REPORT INFORMATION
  Report Type: Spontaneous
  Country: US (occurrence: US)
  Receive Date: 20210423
  Receipt Date: 20210423
  Transmission Date: 20210717
  Serious: No
  Sender: FDA-Public Use
  Company Number: US-TEVA-2021-US-1903348

PATIENT
  Age: 83 Year
  Sex: Female

DRUGS (3)
  1. WARFARIN TEVA [Suspect]
     Active Substance: WARFARIN SODIUM
     Dosage: TAKE AN EXTRA 5 MG DOSE
     Route: 065
  2. WARFARIN TEVA [Suspect]
     Active Substance: WARFARIN SODIUM
     Indication: TRANSIENT ISCHAEMIC ATTACK
     Route: 065
  3. WARFARIN TEVA [Suspect]
     Active Substance: WARFARIN SODIUM
     Dosage: 2.5 MILLIGRAM DAILY;
     Route: 065

REACTIONS (1)
  - International normalised ratio decreased [Unknown]
